FAERS Safety Report 7013449-8 (Version None)
Quarter: 2010Q3

REPORT INFORMATION
  Report Type: 
  Country: None (occurrence: None)
  Receive Date: 20100924
  Receipt Date: 20100914
  Transmission Date: 20110219
  Serious: Yes (Other)
  Sender: FDA-Public Use
  Company Number: US-PFIZER INC-2010116427

PATIENT
  Sex: Male
  Weight: 115.19 kg

DRUGS (4)
  1. LYRICA [Suspect]
     Indication: EPILEPSY
     Dosage: 300 MG, 1X/DAY
     Route: 048
     Dates: start: 20070101
  2. LYRICA [Suspect]
     Dosage: 600 MG/DAILY
  3. TOPAMAX [Suspect]
     Indication: EPILEPSY
     Dosage: UNK
     Route: 048
     Dates: start: 20050101
  4. TRAMADOL [Concomitant]
     Indication: PAIN
     Dosage: 10 MG, AS NEEDED
     Route: 048

REACTIONS (9)
  - ANXIETY [None]
  - CONFUSIONAL STATE [None]
  - DEPRESSION [None]
  - DISTURBANCE IN ATTENTION [None]
  - EUPHORIC MOOD [None]
  - HEADACHE [None]
  - MEMORY IMPAIRMENT [None]
  - MUSCULOSKELETAL STIFFNESS [None]
  - WEIGHT LOSS POOR [None]
